FAERS Safety Report 5373970-5 (Version None)
Quarter: 2007Q2

REPORT INFORMATION
  Report Type: 
  Country: None (occurrence: None)
  Receive Date: 20070628
  Receipt Date: 20070621
  Transmission Date: 20071010
  Serious: Yes (Life-Threatening)
  Sender: FDA-Public Use
  Company Number: BR-ABBOTT-07P-020-0371526-00

PATIENT

DRUGS (1)
  1. SYNTHROID [Suspect]
     Indication: DRUG EXPOSURE DURING PREGNANCY
     Route: 064

REACTIONS (2)
  - DEVELOPMENTAL DELAY [None]
  - FOETAL HEART RATE ABNORMAL [None]
